FAERS Safety Report 4954654-1 (Version None)
Quarter: 2006Q1

REPORT INFORMATION
  Report Type: 
  Country: None (occurrence: None)
  Receive Date: 20060327
  Receipt Date: 20060215
  Transmission Date: 20060701
  Serious: Yes (Hospitalization)
  Sender: FDA-Public Use
  Company Number: FR-ROCHE-436550

PATIENT
  Age: 75 Year
  Sex: Female

DRUGS (10)
  1. RIVOTRIL [Suspect]
     Indication: DRUG USE FOR UNKNOWN INDICATION
     Route: 048
     Dates: start: 19980916, end: 20051011
  2. MODOPAR [Suspect]
     Route: 048
  3. MODOPAR [Suspect]
     Route: 048
     Dates: start: 19980916, end: 20051011
  4. REQUIP [Suspect]
     Dosage: STOPPED ON 11 OCTOBER, RE-STARTED ON AN UNKNOWN DATE.
     Route: 048
     Dates: start: 19980916, end: 20051011
  5. REQUIP [Suspect]
     Route: 048
  6. IMOVANE [Suspect]
     Indication: DRUG USE FOR UNKNOWN INDICATION
     Route: 048
     Dates: start: 19980916, end: 20051011
  7. IMOVANE [Suspect]
     Dosage: 1 DOSE AT NIGHT FOR INSOMNIA.
     Route: 048
  8. XANAX [Suspect]
     Indication: DRUG USE FOR UNKNOWN INDICATION
     Route: 048
     Dates: start: 19980916, end: 20051011
  9. XANAX [Suspect]
     Route: 048
  10. NOZINAN [Suspect]
     Indication: DRUG USE FOR UNKNOWN INDICATION
     Route: 048
     Dates: start: 19980916, end: 20051011

REACTIONS (2)
  - DIFFICULTY IN WALKING [None]
  - DYSPHAGIA [None]
